FAERS Safety Report 16466157 (Version 2)
Quarter: 2019Q3

REPORT INFORMATION
  Report Type: Other
  Country: US (occurrence: US)
  Receive Date: 20190621
  Receipt Date: 20190924
  Transmission Date: 20191004
  Serious: No
  Sender: FDA-Public Use
  Company Number: US-ACORDA-ACO_159268_2019

PATIENT
  Sex: Male

DRUGS (1)
  1. INBRIJA [Suspect]
     Active Substance: LEVODOPA
     Indication: PARKINSON^S DISEASE
     Dosage: 84 MILLIGRAM, PRN

REACTIONS (7)
  - Heart rate increased [Unknown]
  - Agitation [Unknown]
  - Dry mouth [Unknown]
  - Adverse event [Unknown]
  - Parkinson^s disease [Unknown]
  - Muscular weakness [Unknown]
  - Tremor [Unknown]
